FAERS Safety Report 9867954 (Version 4)
Quarter: 2015Q2

REPORT INFORMATION
  Report Type: Report from Study
  Country: JP (occurrence: JP)
  Receive Date: 20140204
  Receipt Date: 20150406
  Transmission Date: 20150821
  Serious: Yes (Death)
  Sender: FDA-Public Use
  Company Number: JP-PFIZER INC-2013315188

PATIENT
  Age: 68 Year
  Sex: Male
  Weight: 62 kg

DRUGS (11)
  1. JANUVIA [Concomitant]
     Active Substance: SITAGLIPTIN PHOSPHATE
     Dosage: 50 MG, 1X/DAY
     Route: 048
     Dates: end: 201303
  2. METHYCOBAL [Concomitant]
     Active Substance: METHYLCOBALAMIN
     Dosage: 1 DF, 3X/DAY
     Route: 048
     Dates: end: 201303
  3. XALKORI [Suspect]
     Active Substance: CRIZOTINIB
     Indication: NON-SMALL CELL LUNG CANCER
     Dosage: 200 MG, 2X/DAY
     Route: 048
     Dates: start: 20130206, end: 20130312
  4. FLUITRAN [Concomitant]
     Active Substance: TRICHLORMETHIAZIDE
     Dosage: 2 MG, 1X/DAY
     Route: 048
     Dates: end: 201303
  5. PYDOXAL [Concomitant]
     Active Substance: PYRIDOXAL
     Dosage: 1 DF, 3X/DAY
     Route: 048
     Dates: end: 201303
  6. GLYCYRON [Concomitant]
     Active Substance: AMMONIUM GLYCYRRHIZATE\GLYCINE\METHIONINE
     Dosage: 2 DF, 3X/DAY
     Route: 048
     Dates: end: 201303
  7. GASTER-D [Concomitant]
     Dosage: 1 DF, 2X/DAY
     Route: 048
     Dates: end: 201303
  8. PROHEPARUM [Concomitant]
     Active Substance: CHOLINE BITARTRATE\CYSTEINE\INOSITOL\MAMMAL LIVER
     Dosage: 1 DF, 3X/DAY
     Route: 048
     Dates: end: 201303
  9. LYRICA [Concomitant]
     Active Substance: PREGABALIN
     Dosage: 50 MG, 2X/DAY
     Route: 048
     Dates: end: 201303
  10. NU LOTAN [Concomitant]
     Active Substance: LOSARTAN
     Dosage: 50 MG, 1X/DAY
     Route: 048
     Dates: end: 201303
  11. MAGMITT [Concomitant]
     Active Substance: MAGNESIUM OXIDE
     Dosage: 330 MG, 2X/DAY
     Route: 048
     Dates: end: 201303

REACTIONS (1)
  - Neuropathy peripheral [Fatal]

NARRATIVE: CASE EVENT DATE: 20130319
